FAERS Safety Report 23768871 (Version 1)
Quarter: 2024Q2

REPORT INFORMATION
  Report Type: Spontaneous
  Country: US (occurrence: US)
  Receive Date: 20240422
  Receipt Date: 20240422
  Transmission Date: 20240716
  Serious: Yes (Hospitalization, Other)
  Sender: FDA-Public Use
  Company Number: US-FreseniusKabi-FK202406485

PATIENT
  Sex: Male

DRUGS (13)
  1. HYDROMORPHONE [Suspect]
     Active Substance: HYDROMORPHONE
     Indication: Pain management
     Dosage: PATIENT CONTROLLED ANALGESIA (PCA) PUMP DOSE 0?0.2MG/HOUR, BASAL RATE WITH AS NEEDED 0.3MG EVERY 10M
  2. HYDROMORPHONE [Suspect]
     Active Substance: HYDROMORPHONE
     Indication: Analgesic therapy
  3. FENTANYL TRANSDERMAL SYSTEM [Suspect]
     Active Substance: FENTANYL
     Indication: Analgesic therapy
     Dosage: INITIALLY 25 ?G/HOUR, TITRATED UP TO 125 ?G/HOUR).
  4. DULOXETINE [Concomitant]
     Active Substance: DULOXETINE
     Indication: Pain management
  5. ACETAMINOPHEN [Concomitant]
     Active Substance: ACETAMINOPHEN
     Indication: Pain management
  6. POLYETHYLENE GLYCOL [Concomitant]
     Active Substance: POLYETHYLENE GLYCOL
     Indication: Small intestinal obstruction
  7. SENNA [Concomitant]
     Active Substance: SENNA LEAF\SENNOSIDES\SENNOSIDES A AND B
     Indication: Small intestinal obstruction
  8. METOCLOPRAMIDE [Concomitant]
     Active Substance: METOCLOPRAMIDE
     Indication: Small intestinal obstruction
  9. DRONABINOL [Concomitant]
     Active Substance: DRONABINOL
     Indication: Small intestinal obstruction
  10. LACTULOSE [Concomitant]
     Active Substance: LACTULOSE
     Indication: Small intestinal obstruction
  11. ENEMA (SODIUM PHOSPHATE, DIBASIC\SODIUM PHOSPHATE, MONOBASIC) [Concomitant]
     Active Substance: SODIUM PHOSPHATE, DIBASIC\SODIUM PHOSPHATE, MONOBASIC
     Indication: Small intestinal obstruction
  12. Sublingual buprenorphine [Concomitant]
     Indication: Pain management
  13. Sublingual buprenorphine [Concomitant]
     Indication: Constipation

REACTIONS (3)
  - Ileus [Recovered/Resolved]
  - Condition aggravated [Recovered/Resolved]
  - Malignant gastrointestinal obstruction [Recovered/Resolved]
